FAERS Safety Report 6599175-8 (Version None)
Quarter: 2010Q1

REPORT INFORMATION
  Report Type: 
  Country: None (occurrence: None)
  Receive Date: 20100224
  Receipt Date: 20100216
  Transmission Date: 20100710
  Serious: Yes (Death, Hospitalization)
  Sender: FDA-Public Use
  Company Number: DE-ELI_LILLY_AND_COMPANY-DE201002002861

PATIENT
  Sex: Male
  Weight: 124 kg

DRUGS (10)
  1. TADALAFIL [Suspect]
     Indication: PULMONARY ARTERIAL HYPERTENSION
     Dosage: 40 MG, DAILY (1/D)
     Route: 048
     Dates: start: 20060731
  2. HEPARIN [Concomitant]
     Route: 058
  3. INSPRA [Concomitant]
     Indication: PULMONARY ARTERIAL HYPERTENSION
     Dates: start: 20060802
  4. DIOVAN [Concomitant]
     Indication: PULMONARY ARTERIAL HYPERTENSION
     Dates: start: 20061001
  5. ALLOPURINOL [Concomitant]
     Dates: start: 20061123
  6. KALINOR [Concomitant]
     Dates: start: 20071104
  7. SITAXSENTAN [Concomitant]
     Dates: start: 20080118
  8. TOREM [Concomitant]
     Dates: start: 20090603
  9. VENTAVIS [Concomitant]
     Dates: start: 20090621
  10. MAGNESIUM [Concomitant]

REACTIONS (2)
  - CARDIAC FAILURE [None]
  - MUSCLE HAEMORRHAGE [None]
